FAERS Safety Report 7713312-0 (Version None)
Quarter: 2011Q3

REPORT INFORMATION
  Report Type: 
  Country: None (occurrence: None)
  Receive Date: 20110826
  Receipt Date: 20110822
  Transmission Date: 20111222
  Serious: Yes (Other)
  Sender: FDA-Public Use
  Company Number: US-AMGEN-USASP2011042634

PATIENT
  Sex: Male

DRUGS (1)
  1. SENSIPAR [Suspect]
     Indication: HYPERCALCAEMIA
     Dosage: 90 MG, QD
     Dates: start: 20100216

REACTIONS (1)
  - CORONARY ARTERY OCCLUSION [None]
